FAERS Safety Report 19180572 (Version 4)
Quarter: 2022Q2

REPORT INFORMATION
  Report Type: Report from Study
  Country: US (occurrence: US)
  Receive Date: 20210426
  Receipt Date: 20220607
  Transmission Date: 20220721
  Serious: No
  Sender: FDA-Public Use
  Company Number: NVSC2021US092149

PATIENT
  Sex: Male

DRUGS (2)
  1. ILARIS [Suspect]
     Active Substance: CANAKINUMAB
     Indication: Pyrexia
     Dosage: 96 MG, EVERY 28 DAYS
     Route: 058
  2. ILARIS [Suspect]
     Active Substance: CANAKINUMAB
     Dosage: 105 MG, EVERY 21 DAYS
     Route: 058

REACTIONS (4)
  - Headache [Unknown]
  - Pain in extremity [Unknown]
  - Pyrexia [Unknown]
  - Insomnia [Unknown]
